FAERS Safety Report 25031472 (Version 1)
Quarter: 2025Q1

REPORT INFORMATION
  Report Type: Spontaneous
  Country: MX (occurrence: MX)
  Receive Date: 20250303
  Receipt Date: 20250303
  Transmission Date: 20250408
  Serious: Yes (Other)
  Sender: BAYER HEALTHCARE PHARMACEUTICALS INC.
  Company Number: MX-BAYER-2025A027870

PATIENT
  Sex: Female

DRUGS (5)
  1. XARELTO [Suspect]
     Active Substance: RIVAROXABAN
     Dosage: 10 MG, QD
  2. FINERENONE [Suspect]
     Active Substance: FINERENONE
     Indication: Heart failure with preserved ejection fraction
     Dosage: UNK UNK, QD
  3. VERICIGUAT [Suspect]
     Active Substance: VERICIGUAT
     Indication: Pulmonary arterial hypertension
     Dosage: 10 MG, QD
  4. VERICIGUAT [Suspect]
     Active Substance: VERICIGUAT
     Indication: Heart failure with preserved ejection fraction
  5. SILDENAFIL [Concomitant]
     Active Substance: SILDENAFIL
     Dosage: 50 MG, QD

REACTIONS (3)
  - Thrombocytopenia [None]
  - Platelet count decreased [None]
  - Off label use [None]
